FAERS Safety Report 6062988-5 (Version None)
Quarter: 2009Q1

REPORT INFORMATION
  Report Type: 
  Country: None (occurrence: None)
  Receive Date: 20090203
  Receipt Date: 20090123
  Transmission Date: 20090719
  Serious: Yes (Hospitalization)
  Sender: FDA-Public Use
  Company Number: B0555842A

PATIENT
  Age: 57 Year
  Sex: Male

DRUGS (18)
  1. DEROXAT [Suspect]
     Dosage: 20MG TWICE PER DAY
     Route: 048
  2. HEPARIN [Suspect]
     Dosage: 30000IU PER DAY
     Route: 042
     Dates: start: 20080925, end: 20081009
  3. KARDEGIC [Suspect]
     Dosage: 75MG PER DAY
     Route: 048
  4. ZYLORIC [Concomitant]
     Route: 048
  5. ATENOLOL [Concomitant]
     Route: 065
  6. HYZAAR [Concomitant]
     Route: 048
  7. LYRICA [Concomitant]
     Route: 048
  8. OMIX [Concomitant]
     Route: 048
  9. TAHOR [Concomitant]
     Route: 048
  10. PERMIXON [Concomitant]
     Route: 048
  11. LASILIX [Concomitant]
     Route: 065
  12. RIVOTRIL [Concomitant]
     Route: 048
  13. ALPRAZOLAM [Concomitant]
     Route: 065
  14. CLAFORAN [Concomitant]
     Route: 065
  15. HUMALOG [Concomitant]
     Route: 065
  16. NEXIUM [Concomitant]
     Route: 048
  17. IKOREL [Concomitant]
     Route: 048
  18. PROSCAR [Concomitant]
     Route: 048

REACTIONS (3)
  - ANAEMIA [None]
  - MUSCLE HAEMORRHAGE [None]
  - RECTAL HAEMORRHAGE [None]
